FAERS Safety Report 7897150-4 (Version None)
Quarter: 2011Q4

REPORT INFORMATION
  Report Type: 
  Country: None (occurrence: None)
  Receive Date: 20111107
  Receipt Date: 20111031
  Transmission Date: 20120403
  Serious: Yes (Other)
  Sender: FDA-Public Use
  Company Number: US-JNJFOC-20110208292

PATIENT
  Sex: Female

DRUGS (5)
  1. DURAGESIC-100 [Suspect]
     Indication: BACK PAIN
     Route: 062
  2. DURAGESIC-100 [Suspect]
     Indication: NECK PAIN
     Route: 062
  3. MANY OTHER UNSPECIFIED MEDICATIONS [Concomitant]
     Indication: PRODUCT USED FOR UNKNOWN INDICATION
     Route: 065
  4. DURAGESIC-100 [Suspect]
     Indication: PAIN
     Route: 062
     Dates: start: 19950101
  5. DURAGESIC-100 [Suspect]
     Route: 062

REACTIONS (5)
  - ROAD TRAFFIC ACCIDENT [None]
  - FALL [None]
  - KNEE ARTHROPLASTY [None]
  - NECK INJURY [None]
  - BACK INJURY [None]
